FAERS Safety Report 6713455-4 (Version None)
Quarter: 2010Q2

REPORT INFORMATION
  Report Type: 
  Country: None (occurrence: None)
  Receive Date: 20100504
  Receipt Date: 20100426
  Transmission Date: 20101027
  Serious: Yes (Death, Life-Threatening, Hospitalization)
  Sender: FDA-Public Use
  Company Number: 2009EU000663

PATIENT
  Age: 48 Year
  Sex: Male

DRUGS (4)
  1. PROGRAF [Suspect]
     Indication: LIVER TRANSPLANT
     Dosage: 200 MG, UNKNOWN/D, ORAL
     Route: 048
     Dates: start: 20081001
  2. SOLU-MEDROL [Suspect]
     Indication: LIVER TRANSPLANT
     Dosage: 0.5 MG, UNKNOWN/D, IV BOLUS
     Route: 040
     Dates: start: 20081001
  3. INIPOMP (PANTOPRAZOLE SODIUM) [Concomitant]
  4. URSODIOL [Concomitant]

REACTIONS (2)
  - CONTINUOUS HAEMODIAFILTRATION [None]
  - SEPTIC SHOCK [None]
